FAERS Safety Report 6436453-7 (Version None)
Quarter: 2009Q4

REPORT INFORMATION
  Report Type: 
  Country: None (occurrence: None)
  Receive Date: 20091110
  Receipt Date: 20091110
  Transmission Date: 20100525
  Serious: Yes (Hospitalization, Disabling, Other)
  Sender: FDA-Public Use
  Company Number: None

PATIENT
  Age: 20 Year
  Sex: Female
  Weight: 56.6996 kg

DRUGS (1)
  1. ABILIFY [Suspect]
     Indication: BIPOLAR DISORDER
     Dosage: 15MG ONCE DAILY PO
     Route: 048
     Dates: start: 20091005, end: 20091101

REACTIONS (5)
  - ARTHRALGIA [None]
  - ASTHENIA [None]
  - JOINT STIFFNESS [None]
  - MOVEMENT DISORDER [None]
  - TREMOR [None]
